FAERS Safety Report 11732590 (Version 1)
Quarter: 2015Q4

REPORT INFORMATION
  Report Type: Report from Study
  Country: US (occurrence: US)
  Receive Date: 20151113
  Receipt Date: 20151113
  Transmission Date: 20160304
  Serious: Yes (Other)
  Sender: FDA-Public Use
  Company Number: US-ROCHE-1659969

PATIENT
  Sex: Female

DRUGS (1)
  1. RITUXAN [Suspect]
     Active Substance: RITUXIMAB
     Indication: RHEUMATOID ARTHRITIS
     Dosage: IT LASTED 6 HOURS
     Route: 042
     Dates: start: 201410

REACTIONS (9)
  - Erythema [Unknown]
  - Hepatitis B [Unknown]
  - Headache [Unknown]
  - Cardiac disorder [Unknown]
  - Cough [Unknown]
  - Flushing [Unknown]
  - Nausea [Recovered/Resolved]
  - Malaise [Unknown]
  - Pyrexia [Unknown]

NARRATIVE: CASE EVENT DATE: 201410
